FAERS Safety Report 5071539-3 (Version None)
Quarter: 2006Q3

REPORT INFORMATION
  Report Type: 
  Country: None (occurrence: None)
  Receive Date: 20060803
  Receipt Date: 20060803
  Transmission Date: 20061208
  Serious: Yes (Life-Threatening, Hospitalization)
  Sender: FDA-Public Use
  Company Number: None

PATIENT
  Age: 78 Year
  Sex: Male
  Weight: 82.5 kg

DRUGS (1)
  1. LISINOPRIL [Suspect]
     Indication: HYPERTENSION
     Dosage: 20 MG PO DAILY
     Route: 048
     Dates: start: 20060526, end: 20060609

REACTIONS (4)
  - DYSPNOEA [None]
  - INTUBATION COMPLICATION [None]
  - RESPIRATORY FAILURE [None]
  - SWOLLEN TONGUE [None]
